APPROVED DRUG PRODUCT: DEXTROSE 60% IN PLASTIC CONTAINER
Active Ingredient: DEXTROSE
Strength: 60GM/100ML **Federal Register determination that product was not discontinued or withdrawn for safety or effectiveness reasons**
Dosage Form/Route: INJECTABLE;INJECTION
Application: N017521 | Product #005
Applicant: BAXTER HEALTHCARE CORP
Approved: Mar 26, 1982 | RLD: Yes | RS: No | Type: DISCN